FAERS Safety Report 12534554 (Version 2)
Quarter: 2016Q3

REPORT INFORMATION
  Report Type: Spontaneous
  Country: NO (occurrence: NO)
  Receive Date: 20160706
  Receipt Date: 20160803
  Transmission Date: 20161109
  Serious: Yes (Other)
  Sender: FDA-Public Use
  Company Number: NO-GILEAD-2016-0221434

PATIENT
  Age: 57 Year
  Sex: Male

DRUGS (3)
  1. HARVONI [Suspect]
     Active Substance: LEDIPASVIR\SOFOSBUVIR
     Indication: HEPATITIS C
     Dosage: UNK
     Route: 065
     Dates: start: 201604
  2. COPEGUS [Concomitant]
     Active Substance: RIBAVIRIN
     Indication: HEPATITIS C
     Dosage: UNK MG, UNK
     Route: 065
     Dates: start: 201604
  3. COPEGUS [Concomitant]
     Active Substance: RIBAVIRIN
     Dosage: 800 UNK, UNK
     Route: 065

REACTIONS (1)
  - Haemoglobin decreased [Unknown]
